FAERS Safety Report 18226415 (Version 1)
Quarter: 2020Q3

REPORT INFORMATION
  Report Type: Spontaneous
  Country: US (occurrence: US)
  Receive Date: 20200902
  Receipt Date: 20200902
  Transmission Date: 20201103
  Serious: No
  Sender: FDA-Public Use
  Company Number: None

PATIENT
  Age: 31 Year
  Sex: Male
  Weight: 89.55 kg

DRUGS (1)
  1. ICY HOT MEDICATED NO MESS APPLICATOR [Suspect]
     Active Substance: MENTHOL
     Indication: MYALGIA
     Route: 061
     Dates: start: 20200902, end: 20200902

REACTIONS (4)
  - Application site pain [None]
  - Application site burn [None]
  - Pain [None]
  - Application site erythema [None]

NARRATIVE: CASE EVENT DATE: 20200902
